FAERS Safety Report 5859436-4 (Version None)
Quarter: 2008Q3

REPORT INFORMATION
  Report Type: 
  Country: None (occurrence: None)
  Receive Date: 20080825
  Receipt Date: 20080813
  Transmission Date: 20090109
  Serious: Yes (Other)
  Sender: FDA-Public Use
  Company Number: 2008BI019031

PATIENT
  Age: 60 Year
  Sex: Female

DRUGS (1)
  1. TYSABRI [Suspect]
     Indication: MULTIPLE SCLEROSIS
     Dosage: 300 MG;QWM; IV
     Route: 042
     Dates: start: 20071212, end: 20080707

REACTIONS (3)
  - FATIGUE [None]
  - GAIT DISTURBANCE [None]
  - GLIOBLASTOMA MULTIFORME [None]
